FAERS Safety Report 4748369-2 (Version None)
Quarter: 2005Q3

REPORT INFORMATION
  Report Type: 
  Country: None (occurrence: None)
  Receive Date: 20050815
  Receipt Date: 20050523
  Transmission Date: 20060218
  Serious: No
  Sender: FDA-Public Use
  Company Number: USA050495025

PATIENT
  Age: 60 Year
  Sex: Male

DRUGS (7)
  1. CIALIS [Suspect]
     Indication: ERECTILE DYSFUNCTION
     Dosage: 20 MG
     Dates: start: 20040101
  2. ACECOL (TEMOCAPRIL HYDROCHLORIDE) [Concomitant]
  3. . [Concomitant]
  4. LOMOTIL [Concomitant]
  5. ZOVIRAX/GRC/ (ACICLOVIR EG) [Concomitant]
  6. CLARITIN [Concomitant]
  7. VIAGRA [Concomitant]

REACTIONS (3)
  - GASTROOESOPHAGEAL REFLUX DISEASE [None]
  - VISUAL ACUITY REDUCED [None]
  - VISUAL DISTURBANCE [None]
